FAERS Safety Report 15901638 (Version 1)
Quarter: 2019Q1

REPORT INFORMATION
  Report Type: Spontaneous
  Country: US (occurrence: US)
  Receive Date: 20190201
  Receipt Date: 20190201
  Transmission Date: 20190417
  Serious: No
  Sender: FDA-Public Use
  Company Number: PHHY2019US023979

PATIENT
  Age: 79 Year
  Sex: Female

DRUGS (1)
  1. DICLOFENAC SODIUM. [Suspect]
     Active Substance: DICLOFENAC SODIUM
     Indication: PAIN IN EXTREMITY
     Dosage: UNK
     Route: 065

REACTIONS (7)
  - Peripheral swelling [Unknown]
  - Hypertension [Unknown]
  - Erythema [Unknown]
  - Swelling face [Unknown]
  - Product use in unapproved indication [Unknown]
  - Application site discolouration [Unknown]
  - Feeling hot [Unknown]

NARRATIVE: CASE EVENT DATE: 20190125
